FAERS Safety Report 7515681-3 (Version None)
Quarter: 2011Q2

REPORT INFORMATION
  Report Type: 
  Country: None (occurrence: None)
  Receive Date: 20110601
  Receipt Date: 20100715
  Transmission Date: 20111010
  Serious: No
  Sender: FDA-Public Use
  Company Number: US-PFIZER INC-2010080142

PATIENT
  Sex: Male
  Weight: 74.83 kg

DRUGS (3)
  1. CHANTIX [Suspect]
     Indication: SMOKING CESSATION THERAPY
     Dosage: 0.5 MG, 1X/DAY
     Dates: start: 20100620
  2. ADVIL LIQUI-GELS [Concomitant]
     Indication: JOINT INJURY
     Dosage: UNK
  3. CHANTIX [Suspect]
     Dosage: 1 MG, 2X/DAY
     Route: 048
     Dates: start: 20100701

REACTIONS (5)
  - IMPATIENCE [None]
  - IRRITABILITY [None]
  - DRUG INEFFECTIVE [None]
  - STRESS [None]
  - ANGER [None]
